FAERS Safety Report 19842888 (Version 1)
Quarter: 2021Q3

REPORT INFORMATION
  Report Type: Report from Study
  Country: None (occurrence: US)
  Receive Date: 20210916
  Receipt Date: 20210916
  Transmission Date: 20211014
  Serious: Yes (Other)
  Sender: FDA-Public Use
  Company Number: US-ABBVIE-21K-163-4079873-00

PATIENT
  Sex: Male

DRUGS (1)
  1. DEPAKOTE ER [Suspect]
     Active Substance: DIVALPROEX SODIUM
     Indication: PRODUCT USED FOR UNKNOWN INDICATION
     Route: 065

REACTIONS (8)
  - Ear operation [Unknown]
  - Radicular pain [Unknown]
  - Nausea [Unknown]
  - Back pain [Unknown]
  - Spinal osteoarthritis [Unknown]
  - Fluid intake reduced [Unknown]
  - Muscle spasms [Unknown]
  - Fatigue [Unknown]
